FAERS Safety Report 23355332 (Version 2)
Quarter: 2024Q1

REPORT INFORMATION
  Report Type: Report from Study
  Country: CA (occurrence: CA)
  Receive Date: 20240102
  Receipt Date: 20240307
  Transmission Date: 20240410
  Serious: Yes (Death, Other)
  Sender: FDA-Public Use
  Company Number: CA-APOTEX-2023AP014280

PATIENT
  Sex: Male

DRUGS (2)
  1. LENALIDOMIDE [Suspect]
     Active Substance: LENALIDOMIDE
     Indication: Follicular lymphoma
     Dosage: 5 MILLIGRAM, QD
     Route: 048
     Dates: start: 20230104, end: 20230912
  2. LENALIDOMIDE [Suspect]
     Active Substance: LENALIDOMIDE
     Indication: Follicular lymphoma refractory
     Dosage: 5 MILLIGRAM, Q.H.S., FOR 21 DAYS THEN 1 WEEK OFF
     Route: 048
     Dates: start: 2023

REACTIONS (5)
  - Death [Fatal]
  - COVID-19 [Unknown]
  - Product supply issue [Unknown]
  - Off label use [Unknown]
  - Product dose omission issue [Unknown]

NARRATIVE: CASE EVENT DATE: 20230101
